FAERS Safety Report 7417670-6 (Version None)
Quarter: 2011Q2

REPORT INFORMATION
  Report Type: 
  Country: None (occurrence: None)
  Receive Date: 20110415
  Receipt Date: 20110407
  Transmission Date: 20111010
  Serious: Yes (Other)
  Sender: FDA-Public Use
  Company Number: PHHY2011US30326

PATIENT
  Age: 35 Year
  Sex: Female

DRUGS (2)
  1. FANAPT [Suspect]
     Dosage: 8 MG, BID
     Dates: start: 20110322
  2. TEMAZEPAM [Concomitant]

REACTIONS (2)
  - AMNESIA [None]
  - LOSS OF CONSCIOUSNESS [None]
